FAERS Safety Report 6233047-3 (Version None)
Quarter: 2009Q2

REPORT INFORMATION
  Report Type: 
  Country: None (occurrence: None)
  Receive Date: 20090616
  Receipt Date: 20090616
  Transmission Date: 20091009
  Serious: No
  Sender: FDA-Public Use
  Company Number: None

PATIENT
  Age: 76 Year
  Sex: Male
  Weight: 76.36 kg

DRUGS (1)
  1. DAPTOMYCIN [Suspect]
     Dosage: 500 MG EVERY DAY IV
     Route: 042
     Dates: start: 20090313, end: 20090314

REACTIONS (1)
  - RHABDOMYOLYSIS [None]
